FAERS Safety Report 7399692-7 (Version None)
Quarter: 2011Q2

REPORT INFORMATION
  Report Type: 
  Country: None (occurrence: None)
  Receive Date: 20110407
  Receipt Date: 20110331
  Transmission Date: 20111010
  Serious: Yes (Other)
  Sender: FDA-Public Use
  Company Number: US-ROCHE-753470

PATIENT
  Sex: Male

DRUGS (4)
  1. AVASTIN [Suspect]
     Indication: MACULAR DEGENERATION
     Dosage: FREQUENCY: ONCE.
     Route: 031
     Dates: start: 20101217, end: 20101217
  2. TOPROL-XL [Concomitant]
  3. HYZAAR [Concomitant]
  4. VIGAMOX [Concomitant]
     Dosage: FREQUENCY: 3 X A DAY FOR 3 DAYS.

REACTIONS (2)
  - PSEUDOENDOPHTHALMITIS [None]
  - PRODUCT QUALITY ISSUE [None]
